FAERS Safety Report 5626294-2 (Version None)
Quarter: 2008Q1

REPORT INFORMATION
  Report Type: 
  Country: None (occurrence: None)
  Receive Date: 20080213
  Receipt Date: 20080213
  Transmission Date: 20080703
  Serious: Yes (Life-Threatening, Hospitalization)
  Sender: FDA-Public Use
  Company Number: None

PATIENT
  Age: 66 Year
  Sex: Male
  Weight: 61.2356 kg

DRUGS (2)
  1. VYTORIN [Suspect]
     Indication: BLOOD CHOLESTEROL
     Dosage: 1/DAY
     Dates: start: 20050501
  2. VYTORIN [Suspect]
     Indication: HYPERTENSION
     Dosage: 1/DAY
     Dates: start: 20050501

REACTIONS (2)
  - BLOOD ELECTROLYTES DECREASED [None]
  - PANCREATITIS [None]
